FAERS Safety Report 26114293 (Version 1)
Quarter: 2025Q4

REPORT INFORMATION
  Report Type: Spontaneous
  Country: AU (occurrence: AU)
  Receive Date: 20251202
  Receipt Date: 20251202
  Transmission Date: 20260117
  Serious: Yes (Hospitalization)
  Sender: MERCK SHARP & DOHME LLC
  Company Number: AU-009507513-2356473

PATIENT
  Age: 52 Year
  Sex: Female

DRUGS (1)
  1. ROCURONIUM BROMIDE [Suspect]
     Active Substance: ROCURONIUM BROMIDE

REACTIONS (3)
  - Hypoxia [Unknown]
  - Anaphylactic reaction [Unknown]
  - Hypotension [Unknown]

NARRATIVE: CASE EVENT DATE: 20240629
